FAERS Safety Report 24567302 (Version 4)
Quarter: 2024Q4

REPORT INFORMATION
  Report Type: Spontaneous
  Country: DE (occurrence: DE)
  Receive Date: 20241030
  Receipt Date: 20241213
  Transmission Date: 20250115
  Serious: Yes (Hospitalization, Other)
  Sender: NOVARTIS
  Company Number: DE-002147023-NVSC2024DE210473

PATIENT
  Sex: Female
  Weight: 68 kg

DRUGS (18)
  1. KESIMPTA [Suspect]
     Active Substance: OFATUMUMAB
     Indication: Multiple sclerosis
     Dosage: UNK
     Route: 065
     Dates: start: 202305, end: 202409
  2. KESIMPTA [Suspect]
     Active Substance: OFATUMUMAB
     Dosage: 20 MG, QMO (INJECTION/PEN)
     Route: 065
     Dates: start: 20230328, end: 20240828
  3. CARBAMAZEPINE [Suspect]
     Active Substance: CARBAMAZEPINE
     Indication: Product used for unknown indication
     Dosage: UNK (300 1/2-0-0-1/2)
     Route: 065
     Dates: start: 20230530, end: 20240605
  4. BACLOFEN [Suspect]
     Active Substance: BACLOFEN
     Indication: Product used for unknown indication
     Dosage: 10 MG (0-0-0-1/2)
     Route: 065
     Dates: start: 20240521, end: 20240829
  5. BACLOFEN [Suspect]
     Active Substance: BACLOFEN
     Dosage: 10 MG, TID (1-1-01)
     Route: 065
     Dates: start: 20240829
  6. DULOXETINE HYDROCHLORIDE [Concomitant]
     Active Substance: DULOXETINE HYDROCHLORIDE
     Indication: Product used for unknown indication
     Dosage: 60 MG, BID (1-0-0-1)
     Route: 065
     Dates: start: 20230504
  7. GABAPENTIN [Concomitant]
     Active Substance: GABAPENTIN
     Indication: Product used for unknown indication
     Dosage: UNK (300, 2-2-2-0)
     Route: 065
     Dates: start: 20240504, end: 20240605
  8. TRAMABETA [Concomitant]
     Indication: Product used for unknown indication
     Dosage: 100 MG, QD (0-0-0-1)
     Route: 065
     Dates: start: 20230530, end: 20231013
  9. AMITRIPTYLINE [Concomitant]
     Active Substance: AMITRIPTYLINE
     Indication: Product used for unknown indication
     Dosage: 10 MG, QD (0-0-0-1)
     Route: 065
     Dates: start: 20230606, end: 20230707
  10. AMITRIPTYLINE [Concomitant]
     Active Substance: AMITRIPTYLINE
     Dosage: 10 MG (1-1-1-2)
     Route: 065
     Dates: start: 20230707
  11. GABAPENTIN [Concomitant]
     Active Substance: GABAPENTIN
     Indication: Product used for unknown indication
     Dosage: 600 MG, QID (1-1-1-1)
     Route: 065
     Dates: start: 20230605, end: 20230707
  12. GABAPENTIN [Concomitant]
     Active Substance: GABAPENTIN
     Dosage: 800 MG, QID (1-1-1-1)
     Route: 065
     Dates: start: 20230707
  13. MIRABEGRON [Concomitant]
     Active Substance: MIRABEGRON
     Indication: Product used for unknown indication
     Dosage: 50 MG, QD (1-0-0-0)
     Route: 065
     Dates: start: 20230504, end: 20230621
  14. TILIDINE [Concomitant]
     Active Substance: TILIDINE
     Indication: Product used for unknown indication
     Dosage: UNK (100/8 RETARD, 2-2-2-0)
     Route: 065
     Dates: start: 20231013, end: 20231017
  15. MORPHINE SULFATE [Concomitant]
     Active Substance: MORPHINE SULFATE
     Indication: Product used for unknown indication
     Dosage: 10 MG (2-1-2-0)
     Route: 065
     Dates: start: 20231102, end: 20231109
  16. MORPHINE SULFATE [Concomitant]
     Active Substance: MORPHINE SULFATE
     Dosage: 10 MG (2-2-2-0)
     Route: 065
     Dates: start: 20231109, end: 20231128
  17. PROPIVERINE HYDROCHLORIDE [Concomitant]
     Active Substance: PROPIVERINE HYDROCHLORIDE
     Indication: Product used for unknown indication
     Dosage: 30 MG, QD (1-0-0-0)
     Route: 065
     Dates: start: 20240521
  18. TIZANIDINE [Concomitant]
     Active Substance: TIZANIDINE
     Indication: Product used for unknown indication
     Dosage: 2 MG, BID
     Route: 065
     Dates: start: 20240521

REACTIONS (7)
  - Vaginal cancer [Unknown]
  - Bladder irritation [Unknown]
  - Vulvovaginal discomfort [Unknown]
  - Post herpetic neuralgia [Unknown]
  - Cyanosis [Unknown]
  - Restless legs syndrome [Unknown]
  - Papilloma viral infection [Unknown]

NARRATIVE: CASE EVENT DATE: 20230901
